FAERS Safety Report 8761524 (Version 2)
Quarter: 2013Q3

REPORT INFORMATION
  Report Type: Spontaneous
  Country: FR (occurrence: None)
  Receive Date: 20120808
  Receipt Date: 20130912
  Transmission Date: 20140515
  Serious: Yes (Life-Threatening)
  Sender: FDA-Public Use
  Company Number: FK201202140

PATIENT
  Age: 22 Year
  Sex: Male

DRUGS (3)
  1. VOLUVEN [Suspect]
     Indication: PRODUCT USED FOR UNKNOWN INDICATION
     Dosage: 1 IN 1 D,
     Route: 041
     Dates: start: 20120512, end: 20120512
  2. ROCURONIUM [Suspect]
     Indication: PRODUCT USED FOR UNKNOWN INDICATION
  3. ETOMIDATE [Suspect]
     Indication: INDUCTION OF ANAESTHESIA
     Route: 040
     Dates: start: 20120512, end: 20120512

REACTIONS (2)
  - Anaphylactic shock [None]
  - Bronchospasm [None]
